FAERS Safety Report 8156399-6 (Version None)
Quarter: 2012Q1

REPORT INFORMATION
  Report Type: 
  Country: None (occurrence: None)
  Receive Date: 20120221
  Receipt Date: 20120221
  Transmission Date: 20120608
  Serious: Yes (Other)
  Sender: FDA-Public Use
  Company Number: None

PATIENT
  Age: 85 Year
  Sex: Male

DRUGS (8)
  1. MIRTAZAPINE [Concomitant]
  2. LEFLUNOMIDE [Concomitant]
  3. OMEPRAZOLE [Concomitant]
  4. LEVOTHROID [Concomitant]
  5. METFORMIN HCL [Concomitant]
  6. ATENOLOL [Concomitant]
  7. REVLIMID [Suspect]
     Indication: MULTIPLE MYELOMA
     Dosage: 25 MG DAILY X21D/28D ORALLY
     Route: 048
     Dates: start: 20120101
  8. TAMSULOSIN HCL [Concomitant]

REACTIONS (3)
  - DECREASED APPETITE [None]
  - PAIN [None]
  - NAUSEA [None]
